FAERS Safety Report 25943745 (Version 2)
Quarter: 2025Q4

REPORT INFORMATION
  Report Type: Spontaneous
  Country: US (occurrence: US)
  Receive Date: 20251021
  Receipt Date: 20251117
  Transmission Date: 20260118
  Serious: Yes (Hospitalization)
  Sender: INCYTE
  Company Number: US-INCYTE CORPORATION-2025IN011215

PATIENT
  Age: 88 Year

DRUGS (1)
  1. JAKAFI [Suspect]
     Active Substance: RUXOLITINIB
     Indication: Product used for unknown indication
     Dosage: 5 MILLIGRAM, BID

REACTIONS (8)
  - Infection [Unknown]
  - Migraine [Unknown]
  - Palpitations [Unknown]
  - White blood cell count increased [Unknown]
  - Blood pressure increased [Unknown]
  - Myalgia [Unknown]
  - Asthenia [Unknown]
  - Nausea [Unknown]
